FAERS Safety Report 9163241 (Version 1)
Quarter: 2013Q1

REPORT INFORMATION
  Report Type: Spontaneous
  Country: US (occurrence: None)
  Receive Date: 20130313
  Receipt Date: 20130313
  Transmission Date: 20140127
  Serious: Yes (Other)
  Sender: FDA-Public Use
  Company Number: None

PATIENT
  Age: 39 Year
  Sex: Female
  Weight: 84.82 kg

DRUGS (1)
  1. CIPROFLOXACIN HCL [Suspect]
     Indication: DIARRHOEA INFECTIOUS
     Route: 048
     Dates: start: 20130310, end: 20130314

REACTIONS (3)
  - Gait disturbance [None]
  - Muscle tightness [None]
  - Pain in extremity [None]
